FAERS Safety Report 11734164 (Version 1)
Quarter: 2015Q4

REPORT INFORMATION
  Report Type: Spontaneous
  Country: US (occurrence: None)
  Receive Date: 20151112
  Receipt Date: 20151112
  Transmission Date: 20160304
  Serious: Yes (Hospitalization)
  Sender: FDA-Public Use
  Company Number: None

PATIENT
  Age: 62 Year
  Sex: Male

DRUGS (1)
  1. VANCOMYCIN [Suspect]
     Active Substance: VANCOMYCIN
     Indication: STAPHYLOCOCCAL BACTERAEMIA
     Route: 042

REACTIONS (4)
  - Drug hypersensitivity [None]
  - Rash generalised [None]
  - Pyrexia [None]
  - White blood cell count decreased [None]

NARRATIVE: CASE EVENT DATE: 20150320
